FAERS Safety Report 5107425-X (Version None)
Quarter: 2006Q3

REPORT INFORMATION
  Report Type: 
  Country: None (occurrence: None)
  Receive Date: 20060731
  Receipt Date: 20060403
  Transmission Date: 20061208
  Serious: No
  Sender: FDA-Public Use
  Company Number: 2006PV011378

PATIENT
  Age: 80 Year
  Sex: Female
  Weight: 90.7194 kg

DRUGS (4)
  1. BYETTA [Suspect]
     Indication: DIABETES MELLITUS
     Dosage: SEE IMAGE
     Route: 058
     Dates: start: 20051101, end: 20060212
  2. BYETTA [Suspect]
     Indication: DIABETES MELLITUS
     Dosage: SEE IMAGE
     Route: 058
     Dates: start: 20060213
  3. CYMBALTA [Concomitant]
  4. PROZAC [Concomitant]

REACTIONS (3)
  - BLOOD GLUCOSE INCREASED [None]
  - PRURITUS [None]
  - RASH [None]
